FAERS Safety Report 22694324 (Version 2)
Quarter: 2023Q4

REPORT INFORMATION
  Report Type: Spontaneous
  Country: US (occurrence: US)
  Receive Date: 20230711
  Receipt Date: 20231220
  Transmission Date: 20240110
  Serious: Yes (Hospitalization, Other)
  Sender: FDA-Public Use
  Company Number: US-CIPLA LTD.-2023US03633

PATIENT

DRUGS (2)
  1. AMANTADINE [Suspect]
     Active Substance: AMANTADINE
     Indication: Hereditary ataxia
     Dosage: UNK, HIGH DOSE
     Route: 065
  2. RILUZOLE [Suspect]
     Active Substance: RILUZOLE
     Indication: Hereditary ataxia
     Dosage: UNK
     Route: 065

REACTIONS (4)
  - Encephalopathy [Recovering/Resolving]
  - Muscle rigidity [Unknown]
  - Pyrexia [Unknown]
  - Drug withdrawal syndrome [Unknown]
